FAERS Safety Report 9236454 (Version 1)
Quarter: 2013Q2

REPORT INFORMATION
  Report Type: Spontaneous
  Country: CA (occurrence: CA)
  Receive Date: 20130417
  Receipt Date: 20130417
  Transmission Date: 20140414
  Serious: Yes (Other)
  Sender: FDA-Public Use
  Company Number: CA-ELI_LILLY_AND_COMPANY-CA201302000504

PATIENT
  Age: 63 Year
  Sex: Male

DRUGS (3)
  1. CYMBALTA [Suspect]
     Indication: DEPRESSION
     Dosage: 30 MG, QD
     Route: 048
     Dates: start: 201207
  2. CYMBALTA [Suspect]
     Dosage: 15 MG, QD
     Route: 048
  3. COTRIMOXAZOLE [Concomitant]
     Dosage: UNK, UNKNOWN

REACTIONS (4)
  - Gastrooesophageal reflux disease [Unknown]
  - Anxiety [Unknown]
  - Tinnitus [Unknown]
  - Drug withdrawal syndrome [Unknown]
